FAERS Safety Report 5375372-4 (Version None)
Quarter: 2007Q2

REPORT INFORMATION
  Report Type: 
  Country: None (occurrence: None)
  Receive Date: 20070629
  Receipt Date: 20070620
  Transmission Date: 20071010
  Serious: Yes (Hospitalization)
  Sender: FDA-Public Use
  Company Number: JP-ABBOTT-06P-087-0324274-00

PATIENT
  Sex: Male

DRUGS (14)
  1. KALETRA [Suspect]
     Indication: HIV INFECTION
     Route: 048
     Dates: start: 20040630, end: 20061123
  2. KALETRA [Suspect]
     Indication: HIV INFECTION
     Route: 048
     Dates: start: 20061124
  3. LAMIVUDINE + ZIDOVUDINE [Suspect]
     Indication: HIV INFECTION
     Route: 048
     Dates: start: 20040630, end: 20040727
  4. TENOFOVIR [Suspect]
     Indication: HIV INFECTION
     Route: 048
     Dates: start: 20040630, end: 20041019
  5. TENOFOVIR [Suspect]
     Route: 048
     Dates: start: 20041020, end: 20041216
  6. ZIDOVUDINE [Suspect]
     Indication: HIV INFECTION
     Route: 048
     Dates: start: 20040728, end: 20040805
  7. LAMIVUDINE [Suspect]
     Indication: HIV INFECTION
     Route: 048
     Dates: start: 20040728
  8. ABACAVIR [Suspect]
     Indication: HIV INFECTION
     Route: 048
     Dates: start: 20040528, end: 20040629
  9. ABACAVIR [Suspect]
     Route: 048
     Dates: start: 20041217
  10. DIDANOSINE [Concomitant]
     Indication: HIV INFECTION
     Route: 048
     Dates: start: 20040528, end: 20040629
  11. EFAVIRENZ [Concomitant]
     Indication: HIV INFECTION
     Route: 048
     Dates: start: 20040528, end: 20040629
  12. ROXATIDINE ACETATE HCL [Concomitant]
     Indication: GASTRITIS
     Route: 048
     Dates: start: 20040804, end: 20041222
  13. BACTRIM [Concomitant]
     Indication: ANTIFUNGAL PROPHYLAXIS
     Dates: start: 20040618, end: 20050317
  14. ZONISAMIDE [Concomitant]
     Indication: CONVULSION PROPHYLAXIS
     Route: 048
     Dates: start: 20040528, end: 20050809

REACTIONS (12)
  - BLOOD ALKALINE PHOSPHATASE INCREASED [None]
  - BLOOD TRIGLYCERIDES INCREASED [None]
  - CONVULSION [None]
  - DEHYDRATION [None]
  - GASTRITIS [None]
  - HYPOKALAEMIA [None]
  - NASOPHARYNGITIS [None]
  - NEUROGENIC BLADDER [None]
  - PROSTATIC ABSCESS [None]
  - PYELONEPHRITIS [None]
  - RENAL IMPAIRMENT [None]
  - URINARY TRACT INFECTION [None]
